FAERS Safety Report 8512405-8 (Version None)
Quarter: 2012Q3

REPORT INFORMATION
  Report Type: 
  Country: None (occurrence: None)
  Receive Date: 20120716
  Receipt Date: 20120705
  Transmission Date: 20120928
  Serious: Yes (Hospitalization)
  Sender: FDA-Public Use
  Company Number: US-ROCHE-1077418

PATIENT
  Age: 56 Year
  Sex: Female

DRUGS (7)
  1. RHEUMATREX [Suspect]
     Indication: PRODUCT USED FOR UNKNOWN INDICATION
     Route: 048
  2. PEGFILGRASTIM [Suspect]
     Indication: PRODUCT USED FOR UNKNOWN INDICATION
  3. ZALTOPROFEN [Concomitant]
  4. ALLOPURINOL [Concomitant]
  5. ENBREL [Suspect]
     Indication: RHEUMATOID ARTHRITIS
     Route: 058
     Dates: start: 20061110
  6. ALFACALCIDOL [Concomitant]
  7. FOLIAMIN [Concomitant]

REACTIONS (1)
  - LARGE INTESTINE CARCINOMA [None]
